FAERS Safety Report 5910917-4 (Version None)
Quarter: 2008Q4

REPORT INFORMATION
  Report Type: 
  Country: None (occurrence: None)
  Receive Date: 20081007
  Receipt Date: 20080707
  Transmission Date: 20090506
  Serious: No
  Sender: FDA-Public Use
  Company Number: US-ASTRAZENECA-2008UW13619

PATIENT
  Age: 55 Year
  Sex: Female
  Weight: 72.6 kg

DRUGS (3)
  1. ARIMIDEX [Suspect]
     Indication: BREAST CANCER
     Route: 048
     Dates: start: 20080301
  2. BONIVA [Concomitant]
  3. THYROID MEDICINE [Concomitant]

REACTIONS (6)
  - ARTHROPATHY [None]
  - ASTHENIA [None]
  - DEPRESSION [None]
  - HEADACHE [None]
  - HOT FLUSH [None]
  - MOOD ALTERED [None]
